FAERS Safety Report 4338607-2 (Version None)
Quarter: 2004Q2

REPORT INFORMATION
  Report Type: 
  Country: None (occurrence: None)
  Receive Date: 20040409
  Receipt Date: 20040329
  Transmission Date: 20050107
  Serious: Yes (Life-Threatening, Hospitalization)
  Sender: FDA-Public Use
  Company Number: 03P-056-0233589-00

PATIENT
  Age: 17 Year
  Sex: Female

DRUGS (1)
  1. DEPAKINE (SODIUM VALPROATE) (SODIUM VALPROATE) (SODIUM VALPROATE) [Suspect]
     Indication: SUICIDE ATTEMPT
     Dosage: ONCE, ORAL
     Route: 048
     Dates: start: 20030828, end: 20030828

REACTIONS (8)
  - BRAIN OEDEMA [None]
  - CARDIAC ARREST [None]
  - COMA [None]
  - DIALYSIS [None]
  - HEPATIC FAILURE [None]
  - INTENTIONAL OVERDOSE [None]
  - RENAL FAILURE [None]
  - SUICIDE ATTEMPT [None]
